FAERS Safety Report 17962898 (Version 1)
Quarter: 2020Q2

REPORT INFORMATION
  Report Type: Spontaneous
  Country: US (occurrence: US)
  Receive Date: 20200630
  Receipt Date: 20200630
  Transmission Date: 20200714
  Serious: Yes (Other)
  Sender: FDA-Public Use
  Company Number: None

PATIENT
  Age: 81 Year
  Sex: Male
  Weight: 76 kg

DRUGS (13)
  1. OXYMETOLAZONE Q SPARY NASAL QID [Concomitant]
     Dates: start: 20200629
  2. PROMETHAZINE WITH CODEINE 5 ML PO Q6 HRS PRN COUGH [Concomitant]
     Dates: start: 20200626
  3. INSULIN SQ [Concomitant]
     Dates: start: 20200628
  4. ENOXAPARIN 60 MG SQ DAILY [Concomitant]
     Dates: start: 20200627
  5. FAMOTIDINE 20 MG PO BID [Concomitant]
     Dates: start: 20200626
  6. FLONASE 50 MCG INHALED DAILY [Concomitant]
     Dates: start: 20200629
  7. ALBUTEROL HFA 180 MCG  Q6 HRS [Concomitant]
     Dates: start: 20200626
  8. ASCORBATE 500 MG PO Q6 HRS [Concomitant]
     Dates: start: 20200626
  9. CHOLECALCIFEROL 2000 IU ORAL DAILY [Concomitant]
     Dates: start: 20200627
  10. MELATONIN 6 MG PO QHS [Concomitant]
     Dates: start: 20200626
  11. LORATIDINE 10 MG PO DAILY [Concomitant]
     Dates: start: 20200629
  12. REMDESIVIR 100 MG IV DAILY IN NS 250 ML [Suspect]
     Active Substance: REMDESIVIR
     Indication: COVID-19
     Route: 041
     Dates: start: 20200628, end: 20200630
  13. ZINC SULFATE 220 MG PO DAILY [Concomitant]
     Dates: start: 20200627

REACTIONS (1)
  - Bradycardia [None]

NARRATIVE: CASE EVENT DATE: 20200630
